FAERS Safety Report 5017734-0 (Version None)
Quarter: 2006Q2

REPORT INFORMATION
  Report Type: 
  Country: None (occurrence: None)
  Receive Date: 20060605
  Receipt Date: 20060524
  Transmission Date: 20061013
  Serious: Yes (Other)
  Sender: FDA-Public Use
  Company Number: PHEH2006US06798

PATIENT
  Sex: Male

DRUGS (3)
  1. AREDIA [Suspect]
     Indication: BONE DISORDER
     Dates: start: 19970701, end: 20020401
  2. ZOMETA [Suspect]
     Indication: BONE DISORDER
     Dates: start: 20020501, end: 20040701
  3. CHEMOTHERAPEUTICS,OTHER [Concomitant]

REACTIONS (7)
  - ANHEDONIA [None]
  - DECREASED INTEREST [None]
  - EMOTIONAL DISTRESS [None]
  - OSTEONECROSIS [None]
  - PAIN [None]
  - PHYSICAL DISABILITY [None]
  - TOOTH EXTRACTION [None]
